FAERS Safety Report 13138707 (Version 1)
Quarter: 2017Q1

REPORT INFORMATION
  Report Type: Spontaneous
  Country: US (occurrence: US)
  Receive Date: 20170123
  Receipt Date: 20170123
  Transmission Date: 20170428
  Serious: No
  Sender: FDA-Public Use
  Company Number: US-BAYER-2017-011940

PATIENT
  Age: 45 Year
  Sex: Male

DRUGS (10)
  1. ETHAMBUTOL [Concomitant]
     Active Substance: ETHAMBUTOL HYDROCHLORIDE
     Indication: DISSEMINATED TUBERCULOSIS
  2. MOXIFLOXACIN ORAL [Suspect]
     Active Substance: MOXIFLOXACIN
     Indication: DISSEMINATED TUBERCULOSIS
     Dosage: UNK
  3. MOXIFLOXACIN ORAL [Suspect]
     Active Substance: MOXIFLOXACIN
     Indication: DISSEMINATED TUBERCULOSIS
     Dosage: DAILY DOSE 400 MG
  4. RIFABUTIN. [Concomitant]
     Active Substance: RIFABUTIN
     Indication: DISSEMINATED TUBERCULOSIS
  5. RIFAMPIN. [Concomitant]
     Active Substance: RIFAMPIN
     Indication: DISSEMINATED TUBERCULOSIS
  6. ISONIAZID. [Concomitant]
     Active Substance: ISONIAZID
     Indication: DISSEMINATED TUBERCULOSIS
  7. PREDNISONE. [Concomitant]
     Active Substance: PREDNISONE
     Indication: DISSEMINATED TUBERCULOSIS
     Dosage: DAILY DOSE 40 MG
  8. PYRAZINAMIDE. [Concomitant]
     Active Substance: PYRAZINAMIDE
     Indication: DISSEMINATED TUBERCULOSIS
  9. LINEZOLID. [Concomitant]
     Active Substance: LINEZOLID
     Indication: DISSEMINATED TUBERCULOSIS
  10. PYRIDOXINE [Concomitant]
     Active Substance: PYRIDOXINE
     Indication: DISSEMINATED TUBERCULOSIS

REACTIONS (1)
  - Off label use [None]
